FAERS Safety Report 7681754-8 (Version None)
Quarter: 2011Q3

REPORT INFORMATION
  Report Type: 
  Country: None (occurrence: None)
  Receive Date: 20110812
  Receipt Date: 20110803
  Transmission Date: 20111222
  Serious: Yes (Hospitalization)
  Sender: FDA-Public Use
  Company Number: US-ASTRAZENECA-2011SE46341

PATIENT
  Age: 48 Year
  Sex: Female

DRUGS (6)
  1. CELEXA [Concomitant]
     Dates: start: 20110701
  2. FLEXERIL [Concomitant]
  3. IMITREX [Concomitant]
     Dosage: PRN
  4. ZOMIG [Suspect]
     Indication: MIGRAINE
     Route: 048
     Dates: start: 20050101
  5. TYLENOL-500 [Concomitant]
     Dosage: PRN
  6. TRAMADOL HCL [Concomitant]

REACTIONS (8)
  - ANXIETY [None]
  - UMBILICAL HERNIA [None]
  - TREMOR [None]
  - PALPITATIONS [None]
  - PANCREATIC CYST [None]
  - OVARIAN CYST [None]
  - POLYP [None]
  - DIABETES MELLITUS [None]
